FAERS Safety Report 14835913 (Version 2)
Quarter: 2018Q2

REPORT INFORMATION
  Report Type: Spontaneous
  Country: FR (occurrence: FR)
  Receive Date: 20180502
  Receipt Date: 20180626
  Transmission Date: 20180711
  Serious: Yes (Other)
  Sender: FDA-Public Use
  Company Number: FR-MERCK KGAA-2046948

PATIENT
  Sex: Female

DRUGS (2)
  1. EUTHYROL [Suspect]
     Active Substance: LEVOTHYROXINE SODIUM\LIOTHYRONINE SODIUM
     Dates: start: 20180320
  2. NOVOTHYROX [Suspect]
     Active Substance: LEVOTHYROXINE SODIUM
     Indication: PRODUCT USED FOR UNKNOWN INDICATION

REACTIONS (5)
  - Fatigue [Recovered/Resolved]
  - Vertigo [Recovering/Resolving]
  - Cardiac disorder [None]
  - Blood thyroid stimulating hormone increased [None]
  - Apathy [Recovering/Resolving]

NARRATIVE: CASE EVENT DATE: 20180221
